FAERS Safety Report 6812831-9 (Version None)
Quarter: 2010Q3

REPORT INFORMATION
  Report Type: 
  Country: None (occurrence: None)
  Receive Date: 20100701
  Receipt Date: 20100623
  Transmission Date: 20110219
  Serious: Yes (Other)
  Sender: FDA-Public Use
  Company Number: JP-ROCHE-712035

PATIENT
  Age: 72 Year
  Sex: Female

DRUGS (3)
  1. HERCEPTIN [Suspect]
     Indication: BREAST CANCER
     Route: 041
  2. ANTINEOPLASTIC AGENTS [Suspect]
     Indication: BREAST CANCER
     Dosage: DRUG NAME REPORTED AS ANTINEOPLASTIC PREPARATIONS EXTRACTED FROM PLANTS.
     Route: 041
  3. FLUOROURACIL [Suspect]
     Indication: BREAST CANCER
     Dosage: DRUG NAME REPORTED AS FLUOROURACIL
     Route: 048

REACTIONS (2)
  - INTERSTITIAL LUNG DISEASE [None]
  - RADIATION PNEUMONITIS [None]
